FAERS Safety Report 7609940-3 (Version None)
Quarter: 2011Q3

REPORT INFORMATION
  Report Type: 
  Country: None (occurrence: None)
  Receive Date: 20110714
  Receipt Date: 20100916
  Transmission Date: 20111222
  Serious: No
  Sender: FDA-Public Use
  Company Number: US-TYCO HEALTHCARE/MALLINCKRODT-T201002009

PATIENT
  Sex: Male

DRUGS (3)
  1. OXYCODONE HCL [Suspect]
     Dosage: 30 MG PER DAY
  2. MORPHINE [Concomitant]
  3. OXYCODONE HCL [Suspect]
     Indication: PAIN
     Dosage: 5 MG, 5 TIMES PER DAY
     Route: 048

REACTIONS (2)
  - WITHDRAWAL SYNDROME [None]
  - SKIN ODOUR ABNORMAL [None]
